FAERS Safety Report 7772803-7 (Version None)
Quarter: 2011Q3

REPORT INFORMATION
  Report Type: 
  Country: None (occurrence: None)
  Receive Date: 20110922
  Receipt Date: 20110413
  Transmission Date: 20111222
  Serious: Yes (Death)
  Sender: FDA-Public Use
  Company Number: US-ASTRAZENECA-2011SE21444

PATIENT
  Sex: Male

DRUGS (7)
  1. PAMELOR [Concomitant]
     Dates: start: 19971215
  2. RISPERDAL [Concomitant]
     Dosage: 3 MG, T PO AM, T PM
     Dates: start: 19971215
  3. SEROQUEL [Suspect]
     Dosage: 25 MG, 1 HS UP TO 2 HS
     Route: 048
     Dates: start: 19980707, end: 20030517
  4. SEROQUEL [Suspect]
     Dosage: 100 MG, 3 HS
     Route: 048
     Dates: start: 19981203, end: 20030517
  5. THORAZINE [Concomitant]
     Dosage: 25 MG, 1 PO HS
     Dates: start: 19971215
  6. COGENTIN [Concomitant]
     Dates: start: 19981007
  7. SEROQUEL [Suspect]
     Dosage: 200 MG, 1 HS
     Route: 048
     Dates: start: 19990223, end: 20030517

REACTIONS (2)
  - DIABETES MELLITUS [None]
  - TYPE 2 DIABETES MELLITUS [None]
